FAERS Safety Report 5777678-3 (Version None)
Quarter: 2008Q2

REPORT INFORMATION
  Report Type: 
  Country: None (occurrence: None)
  Receive Date: 20080618
  Receipt Date: 20080616
  Transmission Date: 20081010
  Serious: Yes (Other)
  Sender: FDA-Public Use
  Company Number: US-ASTRAZENECA-2008UW12076

PATIENT
  Sex: Female

DRUGS (2)
  1. CRESTOR [Suspect]
     Route: 048
  2. OMEGA-3-ACID ETHYL ESTERS [Suspect]
     Route: 048

REACTIONS (2)
  - AORTIC ANEURYSM [None]
  - THERAPEUTIC RESPONSE UNEXPECTED [None]
